FAERS Safety Report 25312592 (Version 1)
Quarter: 2025Q2

REPORT INFORMATION
  Report Type: Spontaneous
  Country: GB (occurrence: GB)
  Receive Date: 20250514
  Receipt Date: 20250514
  Transmission Date: 20250717
  Serious: Yes (Other)
  Sender: PFIZER
  Company Number: GB-PFIZER INC-PV202500057261

PATIENT
  Age: 41 Year
  Sex: Female

DRUGS (1)
  1. GENOTROPIN [Suspect]
     Active Substance: SOMATROPIN
     Indication: Growth hormone deficiency
     Dosage: 0.2MG ONCE A DAY
     Route: 058

REACTIONS (8)
  - Swelling [Unknown]
  - Fluid retention [Unknown]
  - Cortisol decreased [Unknown]
  - Sinusitis [Unknown]
  - Hypertension [Unknown]
  - Headache [Unknown]
  - Feeling abnormal [Unknown]
  - Visual impairment [Unknown]

NARRATIVE: CASE EVENT DATE: 20250508
